FAERS Safety Report 7597777-3 (Version None)
Quarter: 2011Q3

REPORT INFORMATION
  Report Type: 
  Country: None (occurrence: None)
  Receive Date: 20110708
  Receipt Date: 20110705
  Transmission Date: 20111222
  Serious: Yes (Other)
  Sender: FDA-Public Use
  Company Number: DE-GLAXOSMITHKLINE-D0071930A

PATIENT
  Sex: Female

DRUGS (1)
  1. ARIXTRA [Suspect]
     Route: 065
     Dates: start: 20110629, end: 20110704

REACTIONS (2)
  - THROMBOCYTOPENIA [None]
  - DRUG SPECIFIC ANTIBODY PRESENT [None]
